FAERS Safety Report 7360332-4 (Version None)
Quarter: 2011Q1

REPORT INFORMATION
  Report Type: 
  Country: None (occurrence: None)
  Receive Date: 20110318
  Receipt Date: 20100909
  Transmission Date: 20110831
  Serious: Yes (Other)
  Sender: FDA-Public Use
  Company Number: US-BAYER-201021673NA

PATIENT
  Sex: Female
  Weight: 57 kg

DRUGS (12)
  1. YAZ [Suspect]
     Indication: MUSCLE SPASMS
  2. NITROFURANTOIN [Concomitant]
     Dosage: 100 MG, UNK
     Route: 048
     Dates: start: 20090713
  3. YASMIN [Suspect]
     Indication: PRODUCT USED FOR UNKNOWN INDICATION
  4. XANAX [Concomitant]
     Dosage: 0.25 MG, BID
     Route: 048
     Dates: start: 20051014
  5. YAZ [Suspect]
     Indication: ORAL CONTRACEPTION
     Dosage: UNK UNK, QD
     Dates: start: 20090505, end: 20091104
  6. YAZ [Suspect]
     Indication: OVARIAN CYST
  7. YAZ [Suspect]
     Indication: MENORRHAGIA
  8. CHLORDIAZEPOXIDE W/CLIDINIUM [Concomitant]
     Dosage: UNK
     Route: 048
     Dates: start: 20070919
  9. LEVAQUIN [Concomitant]
     Dosage: 500 MG, QD
     Route: 048
     Dates: start: 20090728
  10. OCELLA [Suspect]
  11. LEVSIN [Concomitant]
     Dosage: 0.125 MG, TID
     Route: 060
     Dates: start: 20090713
  12. HYDROCODONE BITARTRATE AND ACETAMINOPHEN [Concomitant]
     Dosage: UNK
     Route: 048
     Dates: start: 20090713

REACTIONS (4)
  - NEPHROLITHIASIS [None]
  - ANXIETY [None]
  - URINARY TRACT INFECTION [None]
  - INJURY [None]
